FAERS Safety Report 9778313 (Version 2)
Quarter: 2013Q4

REPORT INFORMATION
  Report Type: Spontaneous
  Country: US (occurrence: US)
  Receive Date: 20131223
  Receipt Date: 20131223
  Transmission Date: 20140711
  Serious: No
  Sender: FDA-Public Use
  Company Number: 2013SP002167

PATIENT
  Age: 68 Year
  Sex: Female

DRUGS (17)
  1. MELOXICAM [Suspect]
     Indication: PRODUCT USED FOR UNKNOWN INDICATION
  2. DICLOFENAC SODIUM [Suspect]
     Indication: PRODUCT USED FOR UNKNOWN INDICATION
  3. NAPROXEN SODIUM [Suspect]
     Indication: PRODUCT USED FOR UNKNOWN INDICATION
  4. PIROXICAM [Suspect]
  5. CELECOXIB [Suspect]
  6. IBUPROFEN /00109205/ [Suspect]
  7. OXAPROZIN [Suspect]
  8. ETODOLAC [Suspect]
  9. KETOROLAC TROMETHAMINE [Suspect]
  10. KETOPROFEN [Suspect]
  11. FLURBIPROFEN [Suspect]
  12. FENOPROFEN [Suspect]
  13. INDOMETHACIN /00003801/ [Suspect]
  14. TOLMETIN [Suspect]
  15. DIFLUNISAL [Suspect]
  16. NABUMETONE [Suspect]
  17. SULINDAC [Suspect]

REACTIONS (1)
  - Drug hypersensitivity [Unknown]
